FAERS Safety Report 12433714 (Version 1)
Quarter: 2016Q2

REPORT INFORMATION
  Report Type: Report from Study
  Country: CO (occurrence: CO)
  Receive Date: 20160603
  Receipt Date: 20160603
  Transmission Date: 20160815
  Serious: Yes (Other)
  Sender: FDA-Public Use
  Company Number: CO-REGENERON PHARMACEUTICALS, INC.-2016-17806

PATIENT

DRUGS (1)
  1. EYLEA [Suspect]
     Active Substance: AFLIBERCEPT
     Indication: NEOVASCULAR AGE-RELATED MACULAR DEGENERATION
     Dosage: 1 DF, Q2MON
     Dates: start: 20130817, end: 20160525

REACTIONS (2)
  - Glaucoma [Not Recovered/Not Resolved]
  - Retinal disorder [Not Recovered/Not Resolved]

NARRATIVE: CASE EVENT DATE: 20160525
